FAERS Safety Report 26169786 (Version 1)
Quarter: 2025Q4

REPORT INFORMATION
  Report Type: Spontaneous
  Country: US (occurrence: None)
  Receive Date: 20251216
  Receipt Date: 20251216
  Transmission Date: 20260117
  Serious: Yes (Hospitalization)
  Sender: FDA-CTU
  Company Number: None

PATIENT
  Age: 65 Year
  Sex: Male
  Weight: 75 kg

DRUGS (10)
  1. TALVEY [Suspect]
     Active Substance: TALQUETAMAB-TGVS
     Indication: Plasma cell myeloma
     Dosage: OTHER FREQUENCY : EVERY 2 WEEKS;
     Route: 058
  2. MORPHINE [Concomitant]
     Active Substance: MORPHINE
  3. BACTRIM [Concomitant]
     Active Substance: SULFAMETHOXAZOLE\TRIMETHOPRIM
  4. PANTOPRAZOLE [Concomitant]
     Active Substance: PANTOPRAZOLE
  5. LORATADINE [Concomitant]
     Active Substance: LORATADINE
  6. ALBUTEROL [Concomitant]
     Active Substance: ALBUTEROL
  7. ACETAMINOPHEN [Concomitant]
     Active Substance: ACETAMINOPHEN
  8. CALCIUM CARBONATE [Concomitant]
     Active Substance: CALCIUM CARBONATE
  9. DEXAMETHASONE [Concomitant]
     Active Substance: DEXAMETHASONE
  10. VITAMINS [Concomitant]
     Active Substance: VITAMINS

REACTIONS (3)
  - Pyrexia [None]
  - Skin lesion [None]
  - Headache [None]

NARRATIVE: CASE EVENT DATE: 20251203
